FAERS Safety Report 13295715 (Version 1)
Quarter: 2017Q1

REPORT INFORMATION
  Report Type: Spontaneous
  Country: KR (occurrence: KR)
  Receive Date: 20170303
  Receipt Date: 20170303
  Transmission Date: 20170428
  Serious: Yes (Other)
  Sender: FDA-Public Use
  Company Number: KR-009507513-1703KOR001029

PATIENT
  Age: 50 Year
  Sex: Male
  Weight: 71 kg

DRUGS (30)
  1. EMEND (FOSAPREPITANT DIMEGLUMINE) [Suspect]
     Active Substance: FOSAPREPITANT DIMEGLUMINE
     Dosage: 150 MG, ONCE
     Route: 042
     Dates: start: 20161206, end: 20161206
  2. MACPERAN [Concomitant]
     Active Substance: METOCLOPRAMIDE HYDROCHLORIDE
     Dosage: 1 DF, TID
     Route: 048
     Dates: start: 20161108, end: 20161112
  3. KCL HUONS [Concomitant]
     Dosage: 10 ML, BID
     Route: 042
     Dates: start: 20161115, end: 20161115
  4. KYTRIL INJ [Concomitant]
     Indication: PROPHYLAXIS OF NAUSEA AND VOMITING
     Dosage: 3 MG, ONCE
     Dates: start: 20161101, end: 20161101
  5. EMEND (FOSAPREPITANT DIMEGLUMINE) [Suspect]
     Active Substance: FOSAPREPITANT DIMEGLUMINE
     Dosage: 150 MG, ONCE
     Route: 042
     Dates: start: 20161115, end: 20161115
  6. MACPERAN [Concomitant]
     Active Substance: METOCLOPRAMIDE HYDROCHLORIDE
     Indication: PROPHYLAXIS AGAINST GASTROINTESTINAL ULCER
     Dosage: 1 DF, TID
     Route: 048
     Dates: start: 20161101, end: 20161105
  7. EMEND (FOSAPREPITANT DIMEGLUMINE) [Suspect]
     Active Substance: FOSAPREPITANT DIMEGLUMINE
     Dosage: 150 MG, ONCE
     Route: 042
     Dates: start: 20161129, end: 20161129
  8. DEXAMETHASONE DAEWOO [Concomitant]
     Indication: PROPHYLAXIS OF NAUSEA AND VOMITING
     Dosage: 0.5 MG, QD
     Route: 048
     Dates: start: 20161109, end: 20161111
  9. PLAKON INJ [Concomitant]
     Indication: ALLERGY PROPHYLAXIS
     Dosage: 1.5 MG, ONCE, STRENGHT REPORTED AS: 3 MG/2 ML
     Route: 030
     Dates: start: 20161101, end: 20161101
  10. CISPLATIN. [Concomitant]
     Active Substance: CISPLATIN
     Dosage: 73 MG, ONCE, CYLCE 2
     Route: 042
     Dates: start: 20161115, end: 20161115
  11. MAGNESIN (MAGNESIUM SULFATE) [Concomitant]
     Indication: PROPHYLAXIS
     Dosage: 10 ML, BID
     Route: 042
     Dates: start: 20161101, end: 20161101
  12. MAGNESIN (MAGNESIUM SULFATE) [Concomitant]
     Dosage: 10 ML, BID
     Route: 042
     Dates: start: 20161108, end: 20161108
  13. EMEND (FOSAPREPITANT DIMEGLUMINE) [Suspect]
     Active Substance: FOSAPREPITANT DIMEGLUMINE
     Indication: PROPHYLAXIS OF NAUSEA AND VOMITING
     Dosage: 150 MG, ONCE
     Route: 042
     Dates: start: 20161108, end: 20161108
  14. DAEYOO DEXAMETHASONE INJ [Concomitant]
     Indication: PROPHYLAXIS OF NAUSEA AND VOMITING
     Dosage: 5 MG, ONCE
     Route: 042
     Dates: start: 20161108, end: 20161108
  15. NORVASC [Concomitant]
     Active Substance: AMLODIPINE BESYLATE
     Indication: HYPERTENSION
     Dosage: 5 MG, QD
     Route: 048
     Dates: start: 20161031
  16. EMEND (FOSAPREPITANT DIMEGLUMINE) [Suspect]
     Active Substance: FOSAPREPITANT DIMEGLUMINE
     Dosage: 150 MG, ONCE
     Route: 042
     Dates: start: 20161122, end: 20161122
  17. LASIX [Concomitant]
     Active Substance: FUROSEMIDE
     Indication: PROPHYLAXIS
     Dosage: 20 MG, ONCE
     Route: 042
     Dates: start: 20161108, end: 20161108
  18. MACPERAN [Concomitant]
     Active Substance: METOCLOPRAMIDE HYDROCHLORIDE
     Dosage: 1 DF, TID
     Route: 048
     Dates: start: 20161115, end: 20161119
  19. KCL HUONS [Concomitant]
     Dosage: 10 ML, BID
     Route: 042
     Dates: start: 20161108, end: 20161108
  20. MACPERAN INJ [Concomitant]
     Indication: PROPHYLAXIS AGAINST GASTROINTESTINAL ULCER
     Dosage: 10 MG, ONCE
     Route: 042
     Dates: start: 20161101, end: 20161101
  21. EMEND (FOSAPREPITANT DIMEGLUMINE) [Suspect]
     Active Substance: FOSAPREPITANT DIMEGLUMINE
     Dosage: 150 MG, ONCE
     Route: 042
     Dates: start: 20161213, end: 20161213
  22. CISPLATIN. [Concomitant]
     Active Substance: CISPLATIN
     Indication: LARYNGEAL CANCER
     Dosage: 73 MG, ONCE, CYLCE 1
     Route: 042
     Dates: start: 20161108, end: 20161108
  23. KCL HUONS [Concomitant]
     Indication: PROPHYLAXIS
     Dosage: 10 ML, BID
     Route: 042
     Dates: start: 20161101, end: 20161101
  24. MAGNESIN (MAGNESIUM SULFATE) [Concomitant]
     Dosage: 10 ML, BID
     Route: 042
     Dates: start: 20161115, end: 20161115
  25. DAEYOO DEXAMETHASONE INJ [Concomitant]
     Dosage: 5 MG, ONCE, STRENGHT REPORTED AS: 5 MG/ML
     Route: 042
     Dates: start: 20161115, end: 20161115
  26. ALOXI [Concomitant]
     Active Substance: PALONOSETRON HYDROCHLORIDE
     Indication: PROPHYLAXIS OF NAUSEA AND VOMITING
     Dosage: 5 ML, ONCE
     Route: 042
     Dates: start: 20161108, end: 20161108
  27. ALOXI [Concomitant]
     Active Substance: PALONOSETRON HYDROCHLORIDE
     Dosage: 5 ML, ONCE
     Route: 042
     Dates: start: 20161115, end: 20161115
  28. LASIX [Concomitant]
     Active Substance: FUROSEMIDE
     Dosage: 20 MG, ONCE, STRENGHT REPORTED AS: 20 MG/2 ML
     Route: 042
     Dates: start: 20161115, end: 20161115
  29. KYTRIL [Concomitant]
     Active Substance: GRANISETRON HYDROCHLORIDE
     Indication: PROPHYLAXIS OF NAUSEA AND VOMITING
     Dosage: 1 MG, TID
     Route: 048
     Dates: start: 20161101, end: 20161103
  30. PILOGEN [Concomitant]
     Indication: PROPHYLAXIS
     Dosage: 1 DF, QD
     Route: 048
     Dates: start: 20161101

REACTIONS (5)
  - Insomnia [Recovered/Resolved]
  - Nausea [Recovered/Resolved]
  - Cough [Recovered/Resolved]
  - Cancer pain [Unknown]
  - Decreased appetite [Recovered/Resolved]

NARRATIVE: CASE EVENT DATE: 2016
